FAERS Safety Report 4477458-5 (Version None)
Quarter: 2004Q4

REPORT INFORMATION
  Report Type: 
  Country: None (occurrence: None)
  Receive Date: 20041013
  Receipt Date: 20040928
  Transmission Date: 20050328
  Serious: Yes (Other)
  Sender: FDA-Public Use
  Company Number: EWC041040842

PATIENT
  Age: 26 Year
  Sex: Female

DRUGS (3)
  1. CAPREOMYCIN SULFATE [Suspect]
     Indication: TUBERCULOSIS
     Dosage: 1 G DAY
     Dates: start: 20040803, end: 20040927
  2. ISONIAZID [Concomitant]
  3. RIFABUTIN [Concomitant]

REACTIONS (9)
  - ABDOMINAL PAIN UPPER [None]
  - CHEST DISCOMFORT [None]
  - HYPERHIDROSIS [None]
  - MALAISE [None]
  - MYALGIA [None]
  - NASAL DISCOMFORT [None]
  - PARAESTHESIA [None]
  - PYREXIA [None]
  - WHEEZING [None]
